FAERS Safety Report 5068263-X (Version None)
Quarter: 2006Q3

REPORT INFORMATION
  Report Type: 
  Country: None (occurrence: None)
  Receive Date: 20060802
  Receipt Date: 20050629
  Transmission Date: 20061208
  Serious: Yes (Other)
  Sender: FDA-Public Use
  Company Number: US-BRISTOL-MYERS SQUIBB COMPANY-13020011

PATIENT
  Age: 74 Year
  Sex: Male
  Weight: 82 kg

DRUGS (6)
  1. WARFARIN SODIUM [Suspect]
     Indication: DEEP VEIN THROMBOSIS
     Dosage: 8 MG 6 DAYS/WEEK AND 4 MG 1 DAY/WEEK; STOPPED ON 28-JUN-2005; RESTARTED 8MG X 6 DAYS + 4MG X 1 DAY
     Dates: start: 19850101
  2. HYDROCHLOROTHIAZIDE [Concomitant]
  3. FOLIC ACID [Concomitant]
  4. VITAMIN B-12 [Concomitant]
  5. CALCIUM + VITAMIN D [Concomitant]
     Dosage: ADDED 2-3 MONTHS PRIOR TO AE; CALCIUM CITRATE 315MG WITH VITAMIN D 200 IU TWICE DAILY
     Dates: start: 20050101
  6. VITAMIN B COMPLEX CAP [Concomitant]

REACTIONS (1)
  - INTERNATIONAL NORMALISED RATIO INCREASED [None]
